FAERS Safety Report 17447824 (Version 3)
Quarter: 2020Q2

REPORT INFORMATION
  Report Type: Report from Study
  Country: None (occurrence: CA)
  Receive Date: 20200221
  Receipt Date: 20200616
  Transmission Date: 20200713
  Serious: Yes (Other)
  Sender: FDA-Public Use
  Company Number: CA-ABBVIE-20K-028-3284604-00

PATIENT
  Sex: Male

DRUGS (4)
  1. LUPRON DEPOT [Suspect]
     Active Substance: LEUPROLIDE ACETATE
     Route: 065
  2. SALOFALK [Concomitant]
     Indication: PRODUCT USED FOR UNKNOWN INDICATION
     Dosage: DIE AT BED TIME
  3. RELAXA [Concomitant]
     Indication: PRODUCT USED FOR UNKNOWN INDICATION
  4. LUPRON DEPOT [Suspect]
     Active Substance: LEUPROLIDE ACETATE
     Indication: PROSTATE CANCER
     Route: 030
     Dates: start: 20181116

REACTIONS (7)
  - Melaena [Unknown]
  - Faeces soft [Unknown]
  - Haematochezia [Unknown]
  - Gastrointestinal inflammation [Not Recovered/Not Resolved]
  - Gastrointestinal disorder [Unknown]
  - Constipation [Unknown]
  - Rectal haemorrhage [Unknown]
